FAERS Safety Report 4691485-4 (Version None)
Quarter: 2005Q2

REPORT INFORMATION
  Report Type: 
  Country: None (occurrence: None)
  Receive Date: 20050608
  Receipt Date: 20050405
  Transmission Date: 20051028
  Serious: No
  Sender: FDA-Public Use
  Company Number: 401153

PATIENT
  Sex: Male

DRUGS (1)
  1. ACCUTANE [Suspect]
     Indication: ACNE CYSTIC
     Dosage: 60 MG DAILY ORAL
     Route: 048
     Dates: start: 20050304, end: 20050311

REACTIONS (3)
  - HALLUCINATION, AUDITORY [None]
  - NIGHTMARE [None]
  - PSYCHOTIC DISORDER [None]
